FAERS Safety Report 12950321 (Version 1)
Quarter: 2016Q4

REPORT INFORMATION
  Report Type: Spontaneous
  Country: DE (occurrence: DE)
  Receive Date: 20161116
  Receipt Date: 20161116
  Transmission Date: 20170207
  Serious: Yes (Life-Threatening, Hospitalization)
  Sender: FDA-Public Use
  Company Number: DE-TEVA-710282GER

PATIENT
  Age: 76 Year
  Sex: Female
  Weight: 67 kg

DRUGS (2)
  1. PREDNISON [Suspect]
     Active Substance: PREDNISONE
     Dosage: 100 MILLIGRAM DAILY;
     Route: 048
  2. ELIQUIS [Suspect]
     Active Substance: APIXABAN
     Indication: ATRIAL FIBRILLATION
     Dosage: 10 MILLIGRAM DAILY;
     Route: 048
     Dates: start: 201403

REACTIONS (5)
  - Autoimmune haemolytic anaemia [Not Recovered/Not Resolved]
  - Respiratory distress [Unknown]
  - Chromaturia [Unknown]
  - Blood glucose increased [Unknown]
  - Performance status decreased [Unknown]

NARRATIVE: CASE EVENT DATE: 201608
